FAERS Safety Report 9661033 (Version 2)
Quarter: 2014Q1

REPORT INFORMATION
  Report Type: Report from Study
  Country: US (occurrence: US)
  Receive Date: 20131031
  Receipt Date: 20140123
  Transmission Date: 20141002
  Serious: Yes (Congenital Anomaly)
  Sender: FDA-Public Use
  Company Number: US-VIIV HEALTHCARE LIMITED-A1047755A

PATIENT
  Age: 0 Day
  Sex: Male
  Weight: 3.5 kg

DRUGS (5)
  1. RETROVIR [Suspect]
     Indication: ANTIVIRAL TREATMENT
     Route: 064
     Dates: start: 20111026
  2. NORVIR [Suspect]
     Indication: ANTIVIRAL TREATMENT
     Route: 064
     Dates: start: 20111018
  3. PREZISTA [Suspect]
     Indication: ANTIVIRAL TREATMENT
     Route: 064
     Dates: start: 20111018
  4. TRUVADA [Suspect]
     Indication: ANTIVIRAL TREATMENT
     Dosage: 1U PER DAY
     Route: 064
     Dates: start: 20131018
  5. ISENTRESS [Suspect]
     Indication: ANTIVIRAL TREATMENT
     Route: 064
     Dates: start: 20111018

REACTIONS (3)
  - Congenital mitral valve incompetence [Unknown]
  - Postmature baby [Unknown]
  - Foetal exposure during pregnancy [Unknown]
